FAERS Safety Report 5052180-5 (Version None)
Quarter: 2006Q3

REPORT INFORMATION
  Report Type: 
  Country: None (occurrence: None)
  Receive Date: 20060712
  Receipt Date: 20060712
  Transmission Date: 20061208
  Serious: No
  Sender: FDA-Public Use
  Company Number: None

PATIENT
  Sex: Female
  Weight: 78.4723 kg

DRUGS (1)
  1. KETEK [Suspect]
     Indication: SINUSITIS
     Dates: start: 20060525, end: 20060531

REACTIONS (2)
  - HEPATIC FUNCTION ABNORMAL [None]
  - NAUSEA [None]
